FAERS Safety Report 7364184-8 (Version None)
Quarter: 2011Q1

REPORT INFORMATION
  Report Type: 
  Country: None (occurrence: None)
  Receive Date: 20110321
  Receipt Date: 20110218
  Transmission Date: 20110831
  Serious: Yes (Hospitalization, Other)
  Sender: FDA-Public Use
  Company Number: US-BAYER-201041629NA

PATIENT
  Sex: Female
  Weight: 68.027 kg

DRUGS (4)
  1. CELEXA [Concomitant]
     Indication: ANXIETY
     Dosage: 10 MG, QD
     Dates: start: 20050101
  2. YAZ [Suspect]
     Indication: PRODUCT USED FOR UNKNOWN INDICATION
     Dates: start: 20060201
  3. YAZ [Suspect]
     Dosage: UNK
     Dates: start: 20080201, end: 20081101
  4. MULTI-VITAMINS [Concomitant]

REACTIONS (3)
  - PULMONARY EMBOLISM [None]
  - DEEP VEIN THROMBOSIS [None]
  - PAIN IN EXTREMITY [None]
